FAERS Safety Report 4630692-3 (Version None)
Quarter: 2005Q2

REPORT INFORMATION
  Report Type: 
  Country: None (occurrence: None)
  Receive Date: 20050408
  Receipt Date: 20050111
  Transmission Date: 20051028
  Serious: Yes (Other)
  Sender: FDA-Public Use
  Company Number: US-ROCHE-392406

PATIENT
  Age: 45 Year
  Sex: Male
  Weight: 70.8 kg

DRUGS (4)
  1. PEGASYS [Suspect]
     Indication: HEPATITIS C
     Dosage: STRENGTH REPORTED AS: 180 MCG/0.5CC
     Route: 058
     Dates: start: 20050107, end: 20050214
  2. PEGASYS [Suspect]
     Route: 058
  3. COPEGUS [Suspect]
     Indication: HEPATITIS C
     Dosage: TOTAL DAILY DOSE REPORTED AS 1000 MG.
     Route: 048
     Dates: start: 20050107, end: 20050214
  4. COPEGUS [Suspect]
     Route: 048

REACTIONS (6)
  - CHEST DISCOMFORT [None]
  - DISTURBANCE IN ATTENTION [None]
  - HEADACHE [None]
  - PROTEIN TOTAL INCREASED [None]
  - TINNITUS [None]
  - VISION BLURRED [None]
